FAERS Safety Report 7705221-8 (Version None)
Quarter: 2011Q3

REPORT INFORMATION
  Report Type: 
  Country: None (occurrence: None)
  Receive Date: 20110822
  Receipt Date: 20110822
  Transmission Date: 20111222
  Serious: Yes (Hospitalization)
  Sender: FDA-Public Use
  Company Number: None

PATIENT
  Sex: Male
  Weight: 87.99 kg

DRUGS (2)
  1. ETOPOSIDE [Suspect]
     Dosage: 576 MG
     Dates: end: 20110803
  2. CARBOPLATIN [Suspect]
     Dosage: 750 MG
     Dates: end: 20110801

REACTIONS (6)
  - DYSPNOEA [None]
  - DIARRHOEA [None]
  - CONSTIPATION [None]
  - PYREXIA [None]
  - NAUSEA [None]
  - VOMITING [None]
